FAERS Safety Report 7097121-4 (Version None)
Quarter: 2010Q4

REPORT INFORMATION
  Report Type: 
  Country: None (occurrence: None)
  Receive Date: 20101111
  Receipt Date: 20101108
  Transmission Date: 20110411
  Serious: Yes (Death, Other)
  Sender: FDA-Public Use
  Company Number: CA-ROXANE LABORATORIES, INC.-2010-RO-01470RO

PATIENT
  Age: 5 Year
  Sex: Female
  Weight: 35 kg

DRUGS (3)
  1. CLARITHROMYCIN [Suspect]
     Indication: EAR INFECTION
  2. HYDROCODONE BITARTATE [Suspect]
     Indication: NASOPHARYNGITIS
     Route: 048
  3. VALPROIC ACID [Suspect]
     Indication: CONVULSION
     Dosage: 500 MG

REACTIONS (3)
  - ACCIDENTAL OVERDOSE [None]
  - DRUG ADMINISTRATION ERROR [None]
  - DRUG INTERACTION [None]
